FAERS Safety Report 8800743 (Version 2)
Quarter: 2015Q3

REPORT INFORMATION
  Report Type: Report from Study
  Country: US (occurrence: US)
  Receive Date: 20120921
  Receipt Date: 20150701
  Transmission Date: 20151125
  Serious: Yes (Death)
  Sender: FDA-Public Use
  Company Number: US-ROCHE-1104089

PATIENT
  Sex: Female
  Weight: 88 kg

DRUGS (16)
  1. AVASTIN [Suspect]
     Active Substance: BEVACIZUMAB
     Indication: MALIGNANT NEOPLASM OF UTERINE ADNEXA
     Route: 042
  2. FLUTICASONE [Concomitant]
     Active Substance: FLUTICASONE\FLUTICASONE PROPIONATE
     Indication: SINUSITIS
     Route: 065
  3. NEXIUM [Concomitant]
     Active Substance: ESOMEPRAZOLE MAGNESIUM
  4. DECADRON [Concomitant]
     Active Substance: DEXAMETHASONE
     Route: 048
  5. PACLITAXEL. [Concomitant]
     Active Substance: PACLITAXEL
     Route: 042
  6. PACLITAXEL. [Concomitant]
     Active Substance: PACLITAXEL
     Route: 042
  7. OMNICEF (UNITED STATES) [Concomitant]
     Route: 065
  8. REGLAN [Concomitant]
     Active Substance: METOCLOPRAMIDE HYDROCHLORIDE
     Route: 065
  9. BENADRYL [Concomitant]
     Active Substance: DIPHENHYDRAMINE HYDROCHLORIDE
     Route: 065
  10. ZITHROMAX [Concomitant]
     Active Substance: AZITHROMYCIN DIHYDRATE
     Route: 065
  11. PROTONIX (OMEPRAZOLE) [Concomitant]
  12. PACLITAXEL. [Concomitant]
     Active Substance: PACLITAXEL
     Route: 042
  13. AVASTIN [Suspect]
     Active Substance: BEVACIZUMAB
     Indication: OVARIAN CANCER
     Route: 042
     Dates: start: 20060412
  14. LYRICA [Concomitant]
     Active Substance: PREGABALIN
     Route: 065
  15. TEGADERM [Concomitant]
     Active Substance: 2-HYDROXYETHYL METHACRYLATE
  16. PICOLAX (UNITED KINGDOM) [Concomitant]
     Route: 065

REACTIONS (30)
  - Constipation [Unknown]
  - Neuropathy peripheral [Unknown]
  - Pelvic pain [Unknown]
  - Death [Fatal]
  - Diarrhoea [Unknown]
  - Arthralgia [Unknown]
  - Musculoskeletal chest pain [Unknown]
  - Nasopharyngitis [Unknown]
  - Asthenia [Unknown]
  - Dysgeusia [Unknown]
  - Nausea [Unknown]
  - Upper respiratory tract congestion [Unknown]
  - Vaginal discharge [Unknown]
  - Alopecia [Unknown]
  - Abdominal pain [Unknown]
  - Decreased appetite [Unknown]
  - Paraesthesia [Unknown]
  - Peripheral swelling [Unknown]
  - Oropharyngeal pain [Unknown]
  - Epistaxis [Unknown]
  - Insomnia [Unknown]
  - Stomatitis [Unknown]
  - Musculoskeletal pain [Unknown]
  - Gastrointestinal sounds abnormal [Unknown]
  - Gastrooesophageal reflux disease [Unknown]
  - Vomiting [Unknown]
  - Off label use [Unknown]
  - Proteinuria [Unknown]
  - Pain in extremity [Unknown]
  - Disease progression [Unknown]
